FAERS Safety Report 14773517 (Version 3)
Quarter: 2021Q3

REPORT INFORMATION
  Report Type: Spontaneous
  Country: DE (occurrence: DE)
  Receive Date: 20180418
  Receipt Date: 20210821
  Transmission Date: 20211014
  Serious: Yes (Hospitalization, Other)
  Sender: FDA-Public Use
  Company Number: DE-AUROBINDO-AUR-APL-2018-020381

PATIENT
  Age: 82 Year
  Sex: Female
  Weight: 56 kg

DRUGS (44)
  1. CLOPIDOGREL [Suspect]
     Active Substance: CLOPIDOGREL BISULFATE
     Indication: PRODUCT USED FOR UNKNOWN INDICATION
     Dosage: UNK ()
     Route: 065
     Dates: end: 20170124
  2. VALSARTAN. [Suspect]
     Active Substance: VALSARTAN
     Dosage: 160 MG, UNK
     Route: 065
  3. VOLTAREN RESINAT                   /00372302/ [Suspect]
     Active Substance: DICLOFENAC SODIUM
     Indication: PRODUCT USED FOR UNKNOWN INDICATION
     Dosage: 2 (UNITS: UNKNOWN), DAILY ()
     Route: 065
     Dates: start: 201610
  4. SPIRO COMP [Suspect]
     Active Substance: FUROSEMIDE\SPIRONOLACTONE
     Dosage: UNK
     Route: 065
     Dates: end: 201610
  5. SODIUM CHLORIDE. [Concomitant]
     Active Substance: SODIUM CHLORIDE
     Indication: PRODUCT USED FOR UNKNOWN INDICATION
     Dosage: UNK
     Route: 065
  6. XIPAMIDE [Suspect]
     Active Substance: XIPAMIDE
     Indication: PRODUCT USED FOR UNKNOWN INDICATION
     Dosage: 20 MG, UNK
     Route: 065
     Dates: end: 20170124
  7. AMIODARONE HYDROCHLORIDE. [Suspect]
     Active Substance: AMIODARONE HYDROCHLORIDE
     Indication: PRODUCT USED FOR UNKNOWN INDICATION
     Dosage: 200 MG, UNK
     Route: 065
  8. MOVICOL [Suspect]
     Active Substance: POLYETHYLENE GLYCOL 3350\POTASSIUM CHLORIDE\SODIUM BICARBONATE\SODIUM CHLORIDE
     Indication: PRODUCT USED FOR UNKNOWN INDICATION
     Dosage: UNK
     Route: 065
     Dates: start: 20170124
  9. FENTANYL. [Suspect]
     Active Substance: FENTANYL
     Dosage: 75 MICROGRAM/HOUR AND PLASTER CHANGE EVERY 3 DAYS
     Route: 062
  10. CORDAREX [Concomitant]
     Active Substance: AMIODARONE
     Indication: PRODUCT USED FOR UNKNOWN INDICATION
     Dosage: UNK
     Route: 065
  11. PANTOPRAZOLE [Suspect]
     Active Substance: PANTOPRAZOLE
     Indication: PRODUCT USED FOR UNKNOWN INDICATION
     Dosage: 20 MG, DAILY
     Route: 065
  12. ASPIRIN. [Suspect]
     Active Substance: ASPIRIN
     Indication: PRODUCT USED FOR UNKNOWN INDICATION
     Dosage: 100 MG, UNK
     Route: 065
  13. SPASMEX                            /00376202/ [Suspect]
     Active Substance: TROSPIUM CHLORIDE
     Indication: PRODUCT USED FOR UNKNOWN INDICATION
     Dosage: 15 MG, DAILY
     Route: 065
  14. TORASEMID [Suspect]
     Active Substance: TORSEMIDE
     Dosage: 15 MG, QD
     Route: 065
  15. FOLIC ACID. [Concomitant]
     Active Substance: FOLIC ACID
     Indication: PRODUCT USED FOR UNKNOWN INDICATION
     Dosage: 5 MG, UNK
     Dates: start: 20170124
  16. LEVOSIMENDAN [Concomitant]
     Active Substance: LEVOSIMENDAN
     Indication: PRODUCT USED FOR UNKNOWN INDICATION
     Dosage: UNK ()
     Dates: start: 201611, end: 201611
  17. FRAXIPARIN [Concomitant]
     Active Substance: NADROPARIN CALCIUM
     Indication: PRODUCT USED FOR UNKNOWN INDICATION
     Dosage: UNK
     Route: 065
  18. HUMIRA [Suspect]
     Active Substance: ADALIMUMAB
     Dosage: UNK UNK, 2X/WEEK (2)
     Route: 058
     Dates: start: 20120111, end: 20160927
  19. LIXIANA [Suspect]
     Active Substance: EDOXABAN TOSYLATE
     Indication: ATRIAL FIBRILLATION
     Dosage: 30 MG, DAILY
     Route: 065
     Dates: start: 20160930
  20. TORASEMID [Suspect]
     Active Substance: TORSEMIDE
     Indication: PRODUCT USED FOR UNKNOWN INDICATION
     Dosage: 5 MG, UNK
     Route: 065
  21. ENOXAPARIN [Concomitant]
     Active Substance: ENOXAPARIN
     Indication: PRODUCT USED FOR UNKNOWN INDICATION
     Dosage: UNK ()
  22. SODIUM CHLORIDE. [Concomitant]
     Active Substance: SODIUM CHLORIDE
     Dosage: UNK UNK, QD (1)
  23. CLOPIDOGREL [Suspect]
     Active Substance: CLOPIDOGREL BISULFATE
     Dosage: UNK ()
     Route: 048
     Dates: start: 20170124
  24. PREDNISOLON                        /00016201/ [Suspect]
     Active Substance: PREDNISOLONE
     Indication: PRODUCT USED FOR UNKNOWN INDICATION
     Dosage: 5 MG, UNK
     Route: 065
  25. AMIODARONE HYDROCHLORIDE. [Suspect]
     Active Substance: AMIODARONE HYDROCHLORIDE
     Dosage: 200 MG, UNK
     Route: 065
  26. SPASMEX                            /00376202/ [Suspect]
     Active Substance: TROSPIUM CHLORIDE
     Dosage: 45 MG, DAILY
     Route: 065
     Dates: end: 20170124
  27. METOPROLOL SUCCINATE. [Suspect]
     Active Substance: METOPROLOL SUCCINATE
     Dosage: 95 MG, UNK
     Route: 065
  28. FENTANYL. [Suspect]
     Active Substance: FENTANYL
     Indication: PRODUCT USED FOR UNKNOWN INDICATION
     Dosage: 75 UG, EVERY HOUR
     Route: 062
  29. TORASEMID [Suspect]
     Active Substance: TORSEMIDE
     Dosage: 45 MG, QD
     Route: 065
     Dates: start: 20170124, end: 20170124
  30. TOREM                              /01036501/ [Concomitant]
     Active Substance: TORSEMIDE
     Indication: PRODUCT USED FOR UNKNOWN INDICATION
     Dosage: UNK
  31. VALSARTAN. [Suspect]
     Active Substance: VALSARTAN
     Indication: PRODUCT USED FOR UNKNOWN INDICATION
     Dosage: 160 MG, UNK
     Route: 065
  32. HUMIRA [Suspect]
     Active Substance: ADALIMUMAB
     Indication: RHEUMATOID ARTHRITIS
     Dosage: UNK UNK, 2X/WEEK (2)
     Route: 058
     Dates: start: 20120411, end: 20160927
  33. SPIRO COMP [Suspect]
     Active Substance: FUROSEMIDE\SPIRONOLACTONE
     Indication: PRODUCT USED FOR UNKNOWN INDICATION
     Dosage: 1 DF, 1X/DAY
     Route: 065
     Dates: start: 201610
  34. METOPROLOL SUCCINATE. [Suspect]
     Active Substance: METOPROLOL SUCCINATE
     Indication: PRODUCT USED FOR UNKNOWN INDICATION
     Dosage: 95 MG, UNK
     Route: 065
     Dates: start: 20170124
  35. ENOXAPARIN [Concomitant]
     Active Substance: ENOXAPARIN
     Dosage: 0.6 MG, QD
     Route: 065
  36. RIOPAN                             /00141701/ [Concomitant]
     Active Substance: MAGALDRATE
     Indication: PRODUCT USED FOR UNKNOWN INDICATION
     Dosage: UNK ()
  37. SIMVASTATIN. [Suspect]
     Active Substance: SIMVASTATIN
     Indication: PRODUCT USED FOR UNKNOWN INDICATION
     Dosage: 40 MG, UNK
     Route: 065
  38. XIPAMIDE [Suspect]
     Active Substance: XIPAMIDE
     Dosage: 20 MG, UNK
     Route: 065
  39. HUMIRA [Suspect]
     Active Substance: ADALIMUMAB
     Dosage: 1 DF, 2X/WEEK
     Route: 058
     Dates: start: 20161115
  40. DEKRISTOL [Suspect]
     Active Substance: CHOLECALCIFEROL
     Indication: PRODUCT USED FOR UNKNOWN INDICATION
     Dosage: 20000 IU, WEEKLY
     Route: 065
  41. BIFITERAL [Suspect]
     Active Substance: LACTULOSE
     Indication: PRODUCT USED FOR UNKNOWN INDICATION
     Dosage: UNK
     Route: 065
     Dates: start: 20170124
  42. BISOHEXAL [Suspect]
     Active Substance: BISOPROLOL FUMARATE
     Indication: PRODUCT USED FOR UNKNOWN INDICATION
     Dosage: 5 MG, QD
     Route: 065
     Dates: start: 2016
  43. LOSARTAN COMP CT [Suspect]
     Active Substance: HYDROCHLOROTHIAZIDE\LOSARTAN POTASSIUM
     Indication: PRODUCT USED FOR UNKNOWN INDICATION
     Dosage: 1 (UNITS: UNKNOWN), DAILY ()
     Route: 065
     Dates: start: 2016
  44. FRAXIPARIN [Concomitant]
     Active Substance: NADROPARIN CALCIUM
     Dosage: 5700 IU, QD
     Route: 058

REACTIONS (54)
  - Dyspnoea [Unknown]
  - Hyperkalaemia [Unknown]
  - General physical health deterioration [Unknown]
  - Oedema peripheral [Unknown]
  - Diverticulum intestinal [Unknown]
  - Dyspepsia [Unknown]
  - Haematuria [Unknown]
  - Haemarthrosis [Unknown]
  - Anaemia [Recovered/Resolved]
  - Postoperative wound infection [Recovered/Resolved]
  - Femoral hernia incarcerated [Recovered/Resolved]
  - Hyponatraemia [Unknown]
  - Arthralgia [Unknown]
  - Anuria [Unknown]
  - Groin pain [Unknown]
  - Pulmonary hypertension [Unknown]
  - Inflammatory marker increased [Recovered/Resolved]
  - Peripheral swelling [Unknown]
  - Coronary artery disease [Unknown]
  - Hiatus hernia [Unknown]
  - Impaired healing [Recovered/Resolved]
  - Lymphatic fistula [Recovered/Resolved]
  - Osteopenia [Recovered/Resolved]
  - Tricuspid valve incompetence [Unknown]
  - Abdominal discomfort [Unknown]
  - Mitral valve incompetence [Unknown]
  - Aortic valve stenosis [Unknown]
  - Aplastic anaemia [Unknown]
  - Decreased appetite [Unknown]
  - Syncope [Unknown]
  - Arterial haemorrhage [Recovered/Resolved]
  - Escherichia infection [Unknown]
  - Urinary retention [Unknown]
  - Faecaloma [Unknown]
  - Acute kidney injury [Unknown]
  - Left ventricular dysfunction [Recovered/Resolved]
  - Myelodysplastic syndrome [Unknown]
  - Tachyarrhythmia [Unknown]
  - Joint dislocation [Recovered/Resolved]
  - Joint dislocation [Unknown]
  - Cardiogenic shock [Unknown]
  - Wound dehiscence [Recovered/Resolved]
  - Myocardial infarction [Recovered/Resolved]
  - Cardiovascular disorder [Unknown]
  - Pancreatic steatosis [Unknown]
  - Vomiting [Unknown]
  - Gastrointestinal haemorrhage [Recovered/Resolved]
  - Aortic arteriosclerosis [Unknown]
  - Eructation [Unknown]
  - Hepatic cyst [Unknown]
  - Seroma [Unknown]
  - Gait disturbance [Unknown]
  - Wound infection pseudomonas [Unknown]
  - Urinary tract infection [Unknown]

NARRATIVE: CASE EVENT DATE: 201603
